FAERS Safety Report 15904845 (Version 1)
Quarter: 2019Q1

REPORT INFORMATION
  Report Type: Spontaneous
  Country: US (occurrence: US)
  Receive Date: 20190204
  Receipt Date: 20190204
  Transmission Date: 20190417
  Serious: No
  Sender: FDA-Public Use
  Company Number: US-ASTRAZENECA-2019SE12132

PATIENT
  Age: 74 Year
  Sex: Male
  Weight: 85.7 kg

DRUGS (2)
  1. BYDUREON [Suspect]
     Active Substance: EXENATIDE
     Indication: TYPE 2 DIABETES MELLITUS
     Route: 058
     Dates: start: 2016
  2. BYDUREON BCISE [Suspect]
     Active Substance: EXENATIDE
     Indication: TYPE 2 DIABETES MELLITUS
     Route: 058
     Dates: start: 2018

REACTIONS (13)
  - Injection site pain [Unknown]
  - Intentional product misuse [Unknown]
  - Injection site mass [Unknown]
  - Diabetes mellitus inadequate control [Unknown]
  - Skin ulcer [Unknown]
  - Pain in extremity [Not Recovered/Not Resolved]
  - Injection site pruritus [Unknown]
  - Injection site extravasation [Unknown]
  - Glycosylated haemoglobin increased [Unknown]
  - Underdose [Unknown]
  - Product dose omission [Recovered/Resolved]
  - Device issue [Unknown]
  - Localised infection [Unknown]

NARRATIVE: CASE EVENT DATE: 201811
